FAERS Safety Report 7745300-2 (Version None)
Quarter: 2011Q3

REPORT INFORMATION
  Report Type: 
  Country: None (occurrence: None)
  Receive Date: 20110819
  Receipt Date: 20110705
  Transmission Date: 20111222
  Serious: No
  Sender: FDA-Public Use
  Company Number: 023410

PATIENT
  Sex: Female
  Weight: 43.6 kg

DRUGS (6)
  1. VALPROATE SODIUM [Concomitant]
  2. LAMOTRIGINE [Concomitant]
  3. TOPIRAMATE [Concomitant]
  4. LACOSAMIDE [Suspect]
     Indication: CONVULSION
     Dosage: SEE IMAGE
     Route: 048
     Dates: start: 20100615, end: 20100601
  5. LACOSAMIDE [Suspect]
     Indication: CONVULSION
     Dosage: SEE IMAGE
     Route: 048
     Dates: start: 20100621
  6. LACOSAMIDE [Suspect]
     Indication: CONVULSION
     Dosage: SEE IMAGE
     Route: 048
     Dates: start: 20101201

REACTIONS (1)
  - WEIGHT INCREASED [None]
